FAERS Safety Report 11228714 (Version 4)
Quarter: 2015Q4

REPORT INFORMATION
  Report Type: Report from Study
  Country: None (occurrence: JP)
  Receive Date: 20150626
  Receipt Date: 20151112
  Transmission Date: 20160304
  Serious: Yes (Other)
  Sender: FDA-Public Use
  Company Number: 2015JP0342

PATIENT
  Age: 8 Month
  Sex: Male
  Weight: 4 kg

DRUGS (8)
  1. PANVITAN [Concomitant]
     Route: 048
  2. JUVELA [Concomitant]
     Active Substance: .ALPHA.-TOCOPHEROL\RETINOL
     Route: 048
  3. URSO [Concomitant]
     Active Substance: URSODIOL
     Route: 048
  4. ORFADIN [Suspect]
     Active Substance: NITISINONE
     Indication: TYROSINAEMIA
  5. PHENOBAL [Concomitant]
     Active Substance: PHENOBARBITAL
     Route: 048
  6. ONEALFA [Concomitant]
     Active Substance: ALFACALCIDOL
     Route: 048
  7. ORFADIN [Suspect]
     Active Substance: NITISINONE
     Dosage: 6 MG DAILY
     Dates: start: 201510
  8. INCREMIN [Concomitant]
     Active Substance: FERRIC PYROPHOSPHATE
     Route: 048
     Dates: end: 20150513

REACTIONS (2)
  - Conjunctivitis [Recovering/Resolving]
  - Anaemia neonatal [Unknown]

NARRATIVE: CASE EVENT DATE: 20141207
